FAERS Safety Report 21732971 (Version 2)
Quarter: 2024Q2

REPORT INFORMATION
  Report Type: Spontaneous
  Country: US (occurrence: US)
  Receive Date: 20221215
  Receipt Date: 20240514
  Transmission Date: 20240716
  Serious: No
  Sender: FDA-Public Use
  Company Number: US-SA-SAC20221214001516

PATIENT
  Sex: Female
  Weight: 86.182 kg

DRUGS (23)
  1. DUPIXENT [Suspect]
     Active Substance: DUPILUMAB
     Indication: Dermatitis atopic
     Dosage: 300 MG, QOW
     Route: 058
     Dates: start: 202207
  2. COMBIGAN [Concomitant]
     Active Substance: BRIMONIDINE TARTRATE\TIMOLOL MALEATE
  3. CYMBALTA [Concomitant]
     Active Substance: DULOXETINE HYDROCHLORIDE
  4. DOCUSATE SODIUM [Concomitant]
     Active Substance: DOCUSATE SODIUM
  5. IRON [Concomitant]
     Active Substance: IRON
  6. MAGNESIUM CHLORIDE [Concomitant]
     Active Substance: MAGNESIUM CHLORIDE
  7. MELOXICAM [Concomitant]
     Active Substance: MELOXICAM
  8. VITAMIN D3 [Concomitant]
     Active Substance: CHOLECALCIFEROL
  9. VITAMIN K [Concomitant]
     Active Substance: PHYTONADIONE
  10. BRIMONIDINE TARTRATE [Concomitant]
     Active Substance: BRIMONIDINE TARTRATE
  11. DICLOFENAC SODIUM [Concomitant]
     Active Substance: DICLOFENAC\DICLOFENAC SODIUM
  12. FLUTICASONE PROPIONATE [Concomitant]
     Active Substance: FLUTICASONE PROPIONATE
  13. DOXYCYCLINE HYCLATE [Concomitant]
     Active Substance: DOXYCYCLINE HYCLATE
  14. ZOLPIDEM TARTRATE [Concomitant]
     Active Substance: ZOLPIDEM TARTRATE
  15. DAYVIGO [Concomitant]
     Active Substance: LEMBOREXANT
  16. SCOPOLAMINE [Concomitant]
     Active Substance: SCOPOLAMINE
  17. PRAMIPEXOLE DIHYDROCHLORIDE [Concomitant]
     Active Substance: PRAMIPEXOLE DIHYDROCHLORIDE
  18. GABAPENTIN [Concomitant]
     Active Substance: GABAPENTIN
  19. ROPINIROLE HYDROCHLORIDE [Concomitant]
     Active Substance: ROPINIROLE HYDROCHLORIDE
  20. CLOBETASOL PROPIONATE [Concomitant]
     Active Substance: CLOBETASOL PROPIONATE
  21. FISH OIL\TOCOPHEROL [Concomitant]
     Active Substance: FISH OIL\TOCOPHEROL
  22. MODERNA COVID-19 VACCINE [Concomitant]
     Active Substance: ELASOMERAN
  23. B12 ACTIVE [Concomitant]

REACTIONS (3)
  - Scratch [Recovering/Resolving]
  - Skin haemorrhage [Recovering/Resolving]
  - Therapeutic product effect incomplete [Unknown]
